FAERS Safety Report 9531137 (Version 4)
Quarter: 2014Q1

REPORT INFORMATION
  Report Type: Spontaneous
  Country: JP (occurrence: JP)
  Receive Date: 20130918
  Receipt Date: 20140210
  Transmission Date: 20141002
  Serious: Yes (Other)
  Sender: FDA-Public Use
  Company Number: PHHY2013JP102253

PATIENT
  Age: 65 Year
  Sex: Female
  Weight: 60 kg

DRUGS (2)
  1. AFINITOR [Suspect]
     Indication: RENAL CELL CARCINOMA
     Dosage: 10 MG, QD
     Route: 048
     Dates: start: 20130710, end: 20130823
  2. AMLODIN [Concomitant]
     Dosage: 5 MG
     Route: 048

REACTIONS (2)
  - Visual impairment [Recovered/Resolved]
  - Hyperglycaemia [Recovered/Resolved]
